FAERS Safety Report 4501830-8 (Version None)
Quarter: 2004Q4

REPORT INFORMATION
  Report Type: 
  Country: None (occurrence: None)
  Receive Date: 20041115
  Receipt Date: 20041115
  Transmission Date: 20050328
  Serious: Yes (Life-Threatening, Hospitalization)
  Sender: FDA-Public Use
  Company Number: None

PATIENT
  Age: 53 Year
  Sex: Male
  Weight: 73.2 kg

DRUGS (3)
  1. CEPHALEXIN [Suspect]
  2. CORTISPORIN EQUIV OTIC SOLUTION [Concomitant]
  3. FIORINAL [Concomitant]

REACTIONS (2)
  - DYSPNOEA [None]
  - FACE OEDEMA [None]
